FAERS Safety Report 6971876-9 (Version None)
Quarter: 2010Q3

REPORT INFORMATION
  Report Type: 
  Country: None (occurrence: None)
  Receive Date: 20100908
  Receipt Date: 20100908
  Transmission Date: 20110219
  Serious: Yes (Other)
  Sender: FDA-Public Use
  Company Number: None

PATIENT
  Age: 74 Year
  Sex: Female
  Weight: 56.8 kg

DRUGS (1)
  1. LEVOTHYROXINE SODIUM [Suspect]
     Indication: HYPOTHYROIDISM
     Dosage: 25MCG 1 PER DAY 047
     Dates: start: 20100726

REACTIONS (10)
  - APPARENT DEATH [None]
  - ASTHENIA [None]
  - DEHYDRATION [None]
  - DEPRESSION [None]
  - DYSGEUSIA [None]
  - DYSKINESIA [None]
  - HEADACHE [None]
  - LOSS OF CONSCIOUSNESS [None]
  - MALAISE [None]
  - NAUSEA [None]
